FAERS Safety Report 13624316 (Version 1)
Quarter: 2017Q2

REPORT INFORMATION
  Report Type: Spontaneous
  Country: US (occurrence: US)
  Receive Date: 20170607
  Receipt Date: 20170607
  Transmission Date: 20170830
  Serious: No
  Sender: FDA-Public Use
  Company Number: US-PURDUE-USA-2016-0135097

PATIENT
  Sex: Female

DRUGS (3)
  1. BUTRANS [Suspect]
     Active Substance: BUPRENORPHINE
     Indication: ANALGESIC THERAPY
     Dosage: 15 MCG/HR, WEEKLY
     Route: 062
     Dates: start: 20161129
  2. BUTRANS [Suspect]
     Active Substance: BUPRENORPHINE
     Dosage: 10 MCG/HR, WEEKLY
     Route: 062
     Dates: end: 20161129
  3. BUPRENORPHINE (SIMILAR TO NDA 21-306) [Concomitant]
     Active Substance: BUPRENORPHINE
     Indication: BREAKTHROUGH PAIN
     Dosage: UNK
     Route: 065

REACTIONS (4)
  - Application site pruritus [Recovered/Resolved]
  - Dyspnoea [Recovered/Resolved]
  - Drug effect decreased [Recovered/Resolved]
  - Product adhesion issue [Unknown]
